FAERS Safety Report 11648457 (Version 1)
Quarter: 2015Q4

REPORT INFORMATION
  Report Type: Spontaneous
  Country: US (occurrence: US)
  Receive Date: 20151021
  Receipt Date: 20151021
  Transmission Date: 20160304
  Serious: Yes (Other)
  Sender: FDA-Public Use
  Company Number: US-MUNDIPHARMA DS AND PHARMACOVIGILANCE-USA-2015-0124305

PATIENT
  Sex: Female

DRUGS (1)
  1. OXYCONTIN [Suspect]
     Active Substance: OXYCODONE HYDROCHLORIDE
     Indication: PAIN
     Dosage: 2X 80 MG, BID
     Route: 048
     Dates: start: 2005, end: 201503

REACTIONS (9)
  - Pulse abnormal [Unknown]
  - Loss of consciousness [Unknown]
  - Asthenia [Unknown]
  - Pain [Unknown]
  - Pain in extremity [Unknown]
  - Drug dose omission [Unknown]
  - Presyncope [Unknown]
  - Blood pressure decreased [Unknown]
  - Activities of daily living impaired [Unknown]
